FAERS Safety Report 6696662-9 (Version None)
Quarter: 2010Q2

REPORT INFORMATION
  Report Type: 
  Country: None (occurrence: None)
  Receive Date: 20100421
  Receipt Date: 20100106
  Transmission Date: 20101027
  Serious: No
  Sender: FDA-Public Use
  Company Number: US-000039

PATIENT
  Sex: Female
  Weight: 61.2356 kg

DRUGS (2)
  1. KUVAN [Suspect]
     Dosage: ORAL
     Route: 048
     Dates: start: 20080101
  2. ORAL CONTRACEPTIVE NOS [Concomitant]

REACTIONS (1)
  - ALOPECIA [None]
